FAERS Safety Report 14090680 (Version 2)
Quarter: 2019Q1

REPORT INFORMATION
  Report Type: Spontaneous
  Country: US (occurrence: US)
  Receive Date: 20171015
  Receipt Date: 20190123
  Transmission Date: 20190417
  Serious: No
  Sender: FDA-Public Use
  Company Number: US-SA-2017SA138436

PATIENT
  Age: 60 Year
  Sex: Female

DRUGS (1)
  1. AUBAGIO [Suspect]
     Active Substance: TERIFLUNOMIDE
     Indication: MULTIPLE SCLEROSIS
     Dosage: 14 MG,QD
     Route: 048
     Dates: start: 20170429

REACTIONS (6)
  - Depression [Unknown]
  - Nasopharyngitis [Unknown]
  - Infection [Unknown]
  - Herpes zoster [Unknown]
  - Depressed mood [Unknown]
  - Decreased interest [Unknown]
